FAERS Safety Report 9553776 (Version 1)
Quarter: 2013Q3

REPORT INFORMATION
  Report Type: Spontaneous
  Country: CN (occurrence: CN)
  Receive Date: 20130925
  Receipt Date: 20130925
  Transmission Date: 20140515
  Serious: Yes (Other)
  Sender: FDA-Public Use
  Company Number: CHNY2013CN002042

PATIENT
  Age: 71 Year
  Sex: 0

DRUGS (3)
  1. TERBINAFINE [Suspect]
     Indication: SEBORRHOEIC DERMATITIS
     Dosage: 1 DF, QD
     Route: 061
  2. ACENOCOUMAROL [Interacting]
     Dosage: UNK
  3. DILTIAZEM [Interacting]
     Dosage: UNK

REACTIONS (3)
  - International normalised ratio increased [Unknown]
  - Drug level increased [Unknown]
  - Drug interaction [Unknown]
